FAERS Safety Report 8194610-6 (Version None)
Quarter: 2012Q1

REPORT INFORMATION
  Report Type: 
  Country: None (occurrence: None)
  Receive Date: 20120308
  Receipt Date: 20111005
  Transmission Date: 20120608
  Serious: No
  Sender: FDA-Public Use
  Company Number: US-GLAXOSMITHKLINE-A0947284A

PATIENT
  Age: 51 Year
  Sex: Male

DRUGS (3)
  1. NICORETTE (MINT) [Suspect]
     Indication: OFF LABEL USE
  2. NICORETTE [Suspect]
     Indication: OFF LABEL USE
  3. NICORETTE (MINT) [Suspect]
     Indication: OFF LABEL USE

REACTIONS (4)
  - NICOTINE DEPENDENCE [None]
  - THERAPEUTIC RESPONSE UNEXPECTED [None]
  - DRUG ADMINISTRATION ERROR [None]
  - INTENTIONAL DRUG MISUSE [None]
